FAERS Safety Report 5254403-6 (Version None)
Quarter: 2007Q1

REPORT INFORMATION
  Report Type: 
  Country: None (occurrence: None)
  Receive Date: 20070302
  Receipt Date: 20070215
  Transmission Date: 20070707
  Serious: Yes (Hospitalization)
  Sender: FDA-Public Use
  Company Number: ESWYE200317JUL06

PATIENT
  Age: 45 Year
  Sex: Female

DRUGS (2)
  1. ENBREL [Suspect]
     Indication: RHEUMATOID ARTHRITIS
     Route: 058
     Dates: start: 20041101, end: 20060701
  2. ACETAMINOPHEN [Concomitant]
     Indication: FIBROMYALGIA
     Dosage: UNKNOWN
     Route: 048

REACTIONS (2)
  - INTERSTITIAL LUNG DISEASE [None]
  - POLYMYOSITIS [None]
